FAERS Safety Report 21966782 (Version 1)
Quarter: 2023Q1

REPORT INFORMATION
  Report Type: Spontaneous
  Country: US (occurrence: US)
  Receive Date: 20230208
  Receipt Date: 20230208
  Transmission Date: 20230418
  Serious: No
  Sender: FDA-Public Use
  Company Number: US-drreddys-SPO/USA/23/0159859

PATIENT
  Age: 18 Year
  Sex: Male

DRUGS (1)
  1. ZENATANE [Suspect]
     Active Substance: ISOTRETINOIN
     Indication: Product used for unknown indication
     Dosage: RMA ISSUE DATES: 28 SEPTEMBER 2022 04:57:03 PM, 04 OCTOBER 2022 11:43:12 AM, 09 NOVEMBER 2022 01:28:

REACTIONS (1)
  - Adverse drug reaction [Unknown]
